FAERS Safety Report 5588339-8 (Version None)
Quarter: 2008Q1

REPORT INFORMATION
  Report Type: 
  Country: None (occurrence: None)
  Receive Date: 20080111
  Receipt Date: 20071011
  Transmission Date: 20080703
  Serious: No
  Sender: FDA-Public Use
  Company Number: A0681858A

PATIENT
  Age: 55 Year
  Sex: Female
  Weight: 70.5 kg

DRUGS (6)
  1. TYKERB [Suspect]
     Dosage: 5TAB PER DAY
     Route: 048
     Dates: start: 20070801
  2. ZOLOFT [Concomitant]
     Dosage: 50MG PER DAY
     Route: 048
  3. FOSAMAX [Concomitant]
     Dosage: 70MG WEEKLY
     Route: 048
  4. VERAPAMIL [Concomitant]
     Dosage: 120MG PER DAY
     Route: 048
  5. KLOR-CON [Concomitant]
     Dosage: 20MG PER DAY
     Route: 048
  6. FEMARA [Concomitant]
     Dosage: 2.5MG PER DAY
     Route: 048

REACTIONS (2)
  - ACNE [None]
  - DIARRHOEA [None]
